FAERS Safety Report 9184322 (Version 1)
Quarter: 2012Q4

REPORT INFORMATION
  Report Type: 
  Country: US (occurrence: US)
  Receive Date: 20121031
  Receipt Date: 20121031
  Transmission Date: 20130627
  Serious: Yes (Hospitalization)
  Sender: FDA-Public Use
  Company Number: US-BAYER-2012-113625

PATIENT
  Age: 34 Year
  Sex: Female

DRUGS (10)
  1. YAZ [Suspect]
  2. ZONEGRAN [Concomitant]
  3. ACETAMINOPHEN W/CODEINE [Concomitant]
  4. HYDROCODONE/ACETAMINOPHEN [Concomitant]
  5. CELEXA [Concomitant]
  6. SEROQUEL [Concomitant]
  7. XANAX [Concomitant]
  8. IRON [Concomitant]
  9. ZOFRAN [Concomitant]
  10. PERCOCET [Concomitant]

REACTIONS (1)
  - Deep vein thrombosis [None]
